FAERS Safety Report 14682430 (Version 1)
Quarter: 2018Q1

REPORT INFORMATION
  Report Type: Spontaneous
  Country: US (occurrence: US)
  Receive Date: 20180326
  Receipt Date: 20180326
  Transmission Date: 20180509
  Serious: No
  Sender: FDA-Public Use
  Company Number: US-BIOGEN-2018BI00546496

PATIENT
  Sex: Female

DRUGS (1)
  1. ZINBRYTA [Suspect]
     Active Substance: DACLIZUMAB
     Indication: MULTIPLE SCLEROSIS
     Route: 065
     Dates: start: 20170411

REACTIONS (5)
  - Feeling abnormal [Unknown]
  - Diarrhoea [Unknown]
  - Visual impairment [Unknown]
  - Insomnia [Unknown]
  - Fatigue [Unknown]
